FAERS Safety Report 7410825-6 (Version None)
Quarter: 2011Q2

REPORT INFORMATION
  Report Type: 
  Country: None (occurrence: None)
  Receive Date: 20110413
  Receipt Date: 20110405
  Transmission Date: 20111010
  Serious: Yes (Other)
  Sender: FDA-Public Use
  Company Number: US-PFIZER INC-2011075717

PATIENT
  Sex: Female
  Weight: 82 kg

DRUGS (4)
  1. CELEBREX [Suspect]
     Indication: MUSCULOSKELETAL CHEST PAIN
     Dosage: 200 MG, DAILY
     Route: 048
     Dates: start: 20110328, end: 20110404
  2. LISINOPRIL [Concomitant]
     Indication: HYPERTENSION
     Dosage: 10 MG, UNK
  3. ACETYLSALICYLIC ACID [Concomitant]
     Dosage: 81 MG, UNK
  4. CENTRUM [Concomitant]
     Dosage: UNK

REACTIONS (1)
  - ABDOMINAL PAIN [None]
